FAERS Safety Report 17798809 (Version 1)
Quarter: 2020Q2

REPORT INFORMATION
  Report Type: Spontaneous
  Country: US (occurrence: US)
  Receive Date: 20200518
  Receipt Date: 20200518
  Transmission Date: 20200714
  Serious: Yes (Other)
  Sender: FDA-Public Use
  Company Number: None

PATIENT
  Sex: Female
  Weight: 45.45 kg

DRUGS (1)
  1. BUPROPION. [Suspect]
     Active Substance: BUPROPION
     Indication: EX-TOBACCO USER
     Dosage: ?          QUANTITY:1 TABLET(S);?
     Dates: start: 20200514, end: 20200517

REACTIONS (3)
  - Tremor [None]
  - Hyperhidrosis [None]
  - Abdominal pain upper [None]
